FAERS Safety Report 9625656 (Version 2)
Quarter: 2013Q4

REPORT INFORMATION
  Report Type: Spontaneous
  Country: IT (occurrence: IT)
  Receive Date: 20131016
  Receipt Date: 20131111
  Transmission Date: 20140711
  Serious: Yes (Hospitalization)
  Sender: FDA-Public Use
  Company Number: IT-JNJFOC-20131004658

PATIENT
  Age: 11 Year
  Sex: Male
  Weight: 55 kg

DRUGS (3)
  1. HALDOL [Suspect]
     Indication: PSYCHOMOTOR HYPERACTIVITY
     Dosage: 5 GTT X 2 FOR 1 MONTH AND THEN 5 GTT X 2 FOR 4 DAYS
     Route: 048
     Dates: start: 20130901
  2. HALDOL [Suspect]
     Indication: PSYCHOMOTOR HYPERACTIVITY
     Route: 048
  3. HALDOL [Suspect]
     Indication: PSYCHOMOTOR HYPERACTIVITY
     Route: 048
     Dates: start: 20131007, end: 20131007

REACTIONS (9)
  - Accidental exposure to product by child [Unknown]
  - Dyskinesia [Recovered/Resolved]
  - Dystonia [Recovered/Resolved]
  - Tachycardia [Recovered/Resolved]
  - Antipsychotic drug level above therapeutic [Unknown]
  - Hypokalaemia [Unknown]
  - Dysphoria [Unknown]
  - Suspiciousness [Unknown]
  - Anxiety [Unknown]
